FAERS Safety Report 5623050-6 (Version None)
Quarter: 2008Q1

REPORT INFORMATION
  Report Type: 
  Country: None (occurrence: None)
  Receive Date: 20080212
  Receipt Date: 20080212
  Transmission Date: 20080703
  Serious: Yes (Other)
  Sender: FDA-Public Use
  Company Number: A0709071A

PATIENT
  Age: 40 Year
  Sex: Female

DRUGS (1)
  1. ALLI [Suspect]
     Dates: end: 20080208

REACTIONS (9)
  - ASTHMA [None]
  - BRONCHITIS [None]
  - CHEST PAIN [None]
  - COUGH [None]
  - DISCOMFORT [None]
  - ERUCTATION [None]
  - FLATULENCE [None]
  - MALAISE [None]
  - RECTAL DISCHARGE [None]
